FAERS Safety Report 6689395-6 (Version None)
Quarter: 2010Q2

REPORT INFORMATION
  Report Type: 
  Country: None (occurrence: None)
  Receive Date: 20100419
  Receipt Date: 20100419
  Transmission Date: 20101027
  Serious: Yes (Hospitalization)
  Sender: FDA-Public Use
  Company Number: None

PATIENT
  Sex: Male
  Weight: 149.7 kg

DRUGS (2)
  1. AVASTIN [Suspect]
     Indication: LUNG ADENOCARCINOMA
     Dosage: 15 MG/KG -1040 MG- ONCE EVERY 21 DAYS IV DRIP, 90 MINUTES INFUSION
     Route: 041
     Dates: start: 20100324, end: 20100324
  2. ERLOTINIB HYDROCHLORIDE [Suspect]
     Indication: LUNG ADENOCARCINOMA
     Dosage: 150 MG ONCE DAILY PO
     Route: 048
     Dates: start: 20100324, end: 20100409

REACTIONS (3)
  - ILEUS [None]
  - INTESTINAL PERFORATION [None]
  - LARGE INTESTINAL ULCER [None]
